FAERS Safety Report 23227548 (Version 2)
Quarter: 2024Q1

REPORT INFORMATION
  Report Type: Report from Study
  Country: US (occurrence: US)
  Receive Date: 20231124
  Receipt Date: 20240116
  Transmission Date: 20240410
  Serious: No
  Sender: FDA-Public Use
  Company Number: US-002147023-NVSC2023US249370

PATIENT
  Sex: Female

DRUGS (2)
  1. ENTRESTO [Suspect]
     Active Substance: SACUBITRIL\VALSARTAN
     Indication: Product used for unknown indication
     Dosage: 1 DOSAGE FORM, BID (93/103 MG)
     Route: 048
     Dates: start: 2021
  2. ENTRESTO [Suspect]
     Active Substance: SACUBITRIL\VALSARTAN
     Indication: Heart rate abnormal
     Dosage: 1 DOSAGE FORM, BID 90/103
     Route: 048
     Dates: start: 20210430

REACTIONS (4)
  - Sleep disorder [Unknown]
  - Memory impairment [Unknown]
  - Product dose omission issue [Unknown]
  - Speech disorder [Unknown]
